FAERS Safety Report 9648865 (Version 1)
Quarter: 2013Q4

REPORT INFORMATION
  Report Type: Spontaneous
  Country: US (occurrence: None)
  Receive Date: 20131025
  Receipt Date: 20131025
  Transmission Date: 20140711
  Serious: Yes (Other)
  Sender: FDA-Public Use
  Company Number: None

PATIENT
  Age: 46 Year
  Sex: Male
  Weight: 92.99 kg

DRUGS (2)
  1. FORTESTA [Suspect]
     Indication: BLOOD TESTOSTERONE DECREASED
     Dates: start: 20130904, end: 20131004
  2. AXIRON [Suspect]

REACTIONS (5)
  - Rash [None]
  - Skin irritation [None]
  - Skin swelling [None]
  - Dry skin [None]
  - Pruritus [None]
